FAERS Safety Report 6429098 (Version 2)
Quarter: 2013Q3

REPORT INFORMATION
  Report Type: Spontaneous
  Country: AT (occurrence: AT)
  Receive Date: 20070927
  Receipt Date: 20130703
  Transmission Date: 20140515
  Serious: Yes (Hospitalization)
  Sender: FDA-Public Use
  Company Number: AT-ELI_LILLY_AND_COMPANY-US_0408104701

PATIENT
  Age: 55 Year
  Sex: Female

DRUGS (1)
  1. FLUOXETINE HYDROCHLORIDE [Suspect]
     Indication: DEPRESSION
     Dosage: 20 MG, DAILY (1/D)
     Route: 048

REACTIONS (6)
  - Cholestasis [Recovered/Resolved]
  - Hepatitis cholestatic [Unknown]
  - Suicidal ideation [Unknown]
  - Sleep disorder [Unknown]
  - Platelet count decreased [Unknown]
  - Chills [Unknown]
